FAERS Safety Report 24022863 (Version 2)
Quarter: 2024Q3

REPORT INFORMATION
  Report Type: Report from Study
  Country: ZA (occurrence: ZA)
  Receive Date: 20240627
  Receipt Date: 20240710
  Transmission Date: 20241017
  Serious: No
  Sender: ROCHE
  Company Number: ZA-ROCHE-3549439

PATIENT
  Sex: Female

DRUGS (2)
  1. VABYSMO [Suspect]
     Active Substance: FARICIMAB\FARICIMAB-SVOA
     Indication: Diabetic retinopathy
     Dosage: FOR FOUR DOSES THEREAFTER TREAT AND EXTEND
     Route: 065
     Dates: start: 20240412
  2. VABYSMO [Suspect]
     Active Substance: FARICIMAB\FARICIMAB-SVOA
     Indication: Type 1 diabetes mellitus

REACTIONS (2)
  - Off label use [Unknown]
  - No adverse event [Unknown]
